FAERS Safety Report 4612933-1 (Version None)
Quarter: 2005Q1

REPORT INFORMATION
  Report Type: 
  Country: None (occurrence: None)
  Receive Date: 20050318
  Receipt Date: 20050307
  Transmission Date: 20050727
  Serious: Yes (Hospitalization)
  Sender: FDA-Public Use
  Company Number: FR-ROCHE-397618

PATIENT
  Age: 77 Year
  Sex: Male

DRUGS (4)
  1. ROCEPHIN [Suspect]
     Indication: SUPERINFECTION
     Dosage: FORM: INJECTABLE SOLUTION
     Route: 065
     Dates: start: 20041115, end: 20041120
  2. TAVANIC [Concomitant]
     Indication: DRUG USE FOR UNKNOWN INDICATION
     Route: 065
  3. AUGMENTIN '125' [Concomitant]
     Indication: DRUG USE FOR UNKNOWN INDICATION
     Route: 065
  4. ORBENIN CAP [Concomitant]
     Indication: DRUG USE FOR UNKNOWN INDICATION
     Route: 065
     Dates: start: 20041211, end: 20041215

REACTIONS (7)
  - ANOREXIA [None]
  - ERYTHEMA [None]
  - PRURITUS [None]
  - PULMONARY OEDEMA [None]
  - RASH MACULAR [None]
  - SUPERINFECTION [None]
  - TOXIC SKIN ERUPTION [None]
